FAERS Safety Report 6689385-3 (Version None)
Quarter: 2010Q2

REPORT INFORMATION
  Report Type: 
  Country: None (occurrence: None)
  Receive Date: 20100419
  Receipt Date: 20100419
  Transmission Date: 20101027
  Serious: No
  Sender: FDA-Public Use
  Company Number: None

PATIENT
  Sex: Male
  Weight: 59.5 kg

DRUGS (6)
  1. PEG-L ASPARAGINASE (K-H) [Suspect]
     Dosage: 1350 IU
  2. VINCRISTINE SULFATE [Suspect]
     Dosage: 2 MG
  3. CYCLOPHOSPHAMIDE [Suspect]
     Dosage: 1750 MG
  4. CYTARABINE [Suspect]
     Dosage: 1056 MG
  5. MERCAPTOPURINE [Suspect]
     Dosage: 1470 MG
  6. METHOTREXATE [Suspect]
     Dosage: 45 MG

REACTIONS (4)
  - ERYTHEMA [None]
  - HEART RATE INCREASED [None]
  - OEDEMA MOUTH [None]
  - WHEEZING [None]
